FAERS Safety Report 24744368 (Version 1)
Quarter: 2024Q4

REPORT INFORMATION
  Report Type: Spontaneous
  Country: US (occurrence: US)
  Receive Date: 20241217
  Receipt Date: 20241217
  Transmission Date: 20250115
  Serious: No
  Sender: MERCK
  Company Number: US-009507513-2412USA004142

PATIENT
  Age: 55 Year
  Sex: Male

DRUGS (3)
  1. TEMODAR [Suspect]
     Active Substance: TEMOZOLOMIDE
     Indication: Glioblastoma
     Dosage: 6 CYCLES
     Route: 048
  2. OLAPARIB [Concomitant]
     Active Substance: OLAPARIB
  3. AFATINIB [Concomitant]
     Active Substance: AFATINIB

REACTIONS (3)
  - Drug resistance [Unknown]
  - Hypermutation [Unknown]
  - Product use in unapproved indication [Unknown]
